FAERS Safety Report 8582592-4 (Version None)
Quarter: 2012Q3

REPORT INFORMATION
  Report Type: 
  Country: None (occurrence: None)
  Receive Date: 20120809
  Receipt Date: 20120803
  Transmission Date: 20120928
  Serious: Yes (Other)
  Sender: FDA-Public Use
  Company Number: US-ROCHE-1095566

PATIENT
  Sex: Female
  Weight: 57 kg

DRUGS (10)
  1. PULMICORT [Concomitant]
     Route: 065
  2. XOLAIR [Suspect]
     Indication: RHINITIS ALLERGIC
  3. ALVESCO [Concomitant]
     Route: 065
  4. SINGULAIR [Concomitant]
     Route: 065
  5. SYMBICORT [Concomitant]
     Route: 065
  6. CLARITIN [Concomitant]
  7. NASONEX [Concomitant]
  8. XOLAIR [Suspect]
     Indication: ASTHMA
     Route: 058
     Dates: start: 20090427, end: 20090427
  9. PREDNISONE TAB [Concomitant]
     Route: 065
  10. ALBUTEROL [Concomitant]
     Route: 065

REACTIONS (3)
  - TACHYCARDIA [None]
  - ADVERSE DRUG REACTION [None]
  - ILL-DEFINED DISORDER [None]
